FAERS Safety Report 13620733 (Version 1)
Quarter: 2017Q2

REPORT INFORMATION
  Report Type: Spontaneous
  Country: DE (occurrence: DE)
  Receive Date: 20170607
  Receipt Date: 20170607
  Transmission Date: 20170830
  Serious: Yes (Other)
  Sender: FDA-Public Use
  Company Number: DE-AMGEN-DEUSP2017078628

PATIENT
  Sex: Female
  Weight: 80 kg

DRUGS (2)
  1. PEMBROLIZUMAB. [Concomitant]
     Active Substance: PEMBROLIZUMAB
     Indication: MALIGNANT MELANOMA STAGE III
     Dosage: 2 MG/KG, 3 TIMES
     Dates: start: 201701, end: 20170601
  2. IMLYGIC [Suspect]
     Active Substance: TALIMOGENE LAHERPAREPVEC
     Indication: MALIGNANT MELANOMA STAGE III
     Dosage: 4 ML TOTAL (10^6 PFU/ML), UNK
     Route: 026
     Dates: start: 20170405

REACTIONS (10)
  - Pyrexia [Unknown]
  - Vertigo [Unknown]
  - Off label use [Unknown]
  - Muscle spasms [Unknown]
  - Lymphadenopathy [Unknown]
  - Chills [Unknown]
  - Nausea [Unknown]
  - Cough [Unknown]
  - Headache [Unknown]
  - Dizziness [Unknown]

NARRATIVE: CASE EVENT DATE: 20170405
